FAERS Safety Report 6236629-8 (Version None)
Quarter: 2009Q2

REPORT INFORMATION
  Report Type: 
  Country: None (occurrence: None)
  Receive Date: 20090619
  Receipt Date: 20080808
  Transmission Date: 20091009
  Serious: No
  Sender: FDA-Public Use
  Company Number: US-ASTRAZENECA-2008UW16338

PATIENT
  Age: 52 Year
  Sex: Female

DRUGS (1)
  1. ATACAND [Suspect]
     Indication: MIGRAINE
     Route: 048

REACTIONS (2)
  - LYMPHOEDEMA [None]
  - OEDEMA PERIPHERAL [None]
